FAERS Safety Report 7639885-4 (Version None)
Quarter: 2011Q3

REPORT INFORMATION
  Report Type: 
  Country: None (occurrence: None)
  Receive Date: 20110727
  Receipt Date: 20110720
  Transmission Date: 20111222
  Serious: Yes (Hospitalization, Other)
  Sender: FDA-Public Use
  Company Number: US-ABBOTT-11P-163-0726653-00

PATIENT
  Age: 66 Year
  Sex: Female

DRUGS (6)
  1. HUMIRA [Suspect]
     Dates: start: 20110404
  2. HUMIRA [Suspect]
     Indication: RHEUMATOID ARTHRITIS
     Dates: end: 20110324
  3. NORVASC [Concomitant]
     Indication: HYPERTENSION
  4. FOSAMAX [Concomitant]
     Indication: OSTEOARTHRITIS
  5. PREDNISONE [Concomitant]
     Indication: RHEUMATOID ARTHRITIS
  6. SULFASALAZINE [Concomitant]
     Indication: RHEUMATOID ARTHRITIS

REACTIONS (9)
  - JOINT SWELLING [None]
  - HYPERTHYROIDISM [None]
  - LOCALISED OEDEMA [None]
  - OEDEMA PERIPHERAL [None]
  - DEVICE DISLOCATION [None]
  - ORAL CANDIDIASIS [None]
  - FUNGAL INFECTION [None]
  - JOINT CREPITATION [None]
  - RHEUMATOID ARTHRITIS [None]
